FAERS Safety Report 9526051 (Version 2)
Quarter: 2013Q4

REPORT INFORMATION
  Report Type: Spontaneous
  Country: BR (occurrence: BR)
  Receive Date: 20130916
  Receipt Date: 20131028
  Transmission Date: 20140711
  Serious: Yes (Life-Threatening, Hospitalization)
  Sender: FDA-Public Use
  Company Number: BR-SANOFI-AVENTIS-2013SA090583

PATIENT
  Age: 45 Year
  Sex: Female
  Weight: 60 kg

DRUGS (5)
  1. DOCETAXEL [Suspect]
     Indication: BREAST CANCER
     Route: 042
     Dates: start: 20130905, end: 20130905
  2. KYTRIL [Concomitant]
     Indication: BREAST CANCER
     Route: 042
  3. CYCLOPHOSPHAMIDE [Concomitant]
     Indication: BREAST CANCER
     Route: 042
  4. FLUOROURACIL [Concomitant]
     Indication: BREAST CANCER
     Route: 042
  5. METHOTREXATE [Concomitant]
     Indication: BREAST CANCER
     Route: 042

REACTIONS (5)
  - Angiopathy [Recovered/Resolved]
  - Cerebrovascular accident [Recovered/Resolved]
  - Headache [Recovered/Resolved]
  - Visual impairment [Recovered/Resolved]
  - Convulsion [Recovered/Resolved]
